FAERS Safety Report 4844708-2 (Version None)
Quarter: 2005Q4

REPORT INFORMATION
  Report Type: 
  Country: None (occurrence: None)
  Receive Date: 20051129
  Receipt Date: 20051116
  Transmission Date: 20060501
  Serious: Yes (Other)
  Sender: FDA-Public Use
  Company Number: WAES 0511USA01953

PATIENT
  Sex: Female

DRUGS (2)
  1. COZAAR [Suspect]
     Indication: HYPERTENSION
     Dosage: 50 MG/DAILY  PO
     Route: 048
     Dates: start: 20010911, end: 20030710
  2. COZAAR [Suspect]
     Indication: HYPERTENSION
     Dosage: 50 MG/DAILY  PO
     Route: 048
     Dates: start: 20040701, end: 20041130

REACTIONS (1)
  - CARDIAC FAILURE [None]
